FAERS Safety Report 4575397-2 (Version None)
Quarter: 2005Q1

REPORT INFORMATION
  Report Type: 
  Country: None (occurrence: None)
  Receive Date: 20050131
  Receipt Date: 20050131
  Transmission Date: 20050727
  Serious: No
  Sender: FDA-Public Use
  Company Number: None

PATIENT
  Age: 54 Year
  Sex: Female
  Weight: 67.586 kg

DRUGS (2)
  1. HYDREA 500 MG-TITRATED / TO PLT COUNT { 600K [Suspect]
     Indication: THROMBOCYTOPENIA
     Dosage: RANGE 1 QD TO 2 QID
  2. AMBIEN 10 MF [Suspect]
     Dosage: 2 QID

REACTIONS (4)
  - DRUG EFFECT DECREASED [None]
  - PHARMACEUTICAL PRODUCT COMPLAINT [None]
  - PLATELET COUNT INCREASED [None]
  - PURPURA [None]
